FAERS Safety Report 20772265 (Version 2)
Quarter: 2022Q2

REPORT INFORMATION
  Report Type: Spontaneous
  Country: IT (occurrence: IT)
  Receive Date: 20220502
  Receipt Date: 20220517
  Transmission Date: 20220721
  Serious: Yes (Death, Hospitalization, Other)
  Sender: FDA-Public Use
  Company Number: IT-ROCHE-3014361

PATIENT
  Age: 55 Year
  Sex: Female
  Weight: 80 kg

DRUGS (2)
  1. PACLITAXEL [Suspect]
     Active Substance: PACLITAXEL
     Indication: Breast cancer metastatic
     Dosage: HE RECEIVED 100 MG/MQ ON DAY 1-8-15 EVERY CYCLE (1 CYCLE OF 28 DAYS)
     Route: 042
     Dates: start: 20210622, end: 20220104
  2. TECENTRIQ [Suspect]
     Active Substance: ATEZOLIZUMAB
     Indication: Breast cancer metastatic
     Dosage: HE RECEIVED 840 MG ON DAY 1 AND DAY 15 EVERY CYCLE (1 CYCLE OF 28 DAYS)
     Route: 041
     Dates: start: 20210622, end: 20220104

REACTIONS (8)
  - Dyspnoea [Fatal]
  - Acute respiratory failure [Fatal]
  - Shock [Fatal]
  - Cardiac arrest [Fatal]
  - Adrenal disorder [Fatal]
  - Pyrexia [Fatal]
  - Productive cough [Fatal]
  - Diarrhoea [Fatal]

NARRATIVE: CASE EVENT DATE: 20220117
